FAERS Safety Report 5349324-4 (Version None)
Quarter: 2007Q2

REPORT INFORMATION
  Report Type: 
  Country: None (occurrence: None)
  Receive Date: 20070607
  Receipt Date: 20070605
  Transmission Date: 20071010
  Serious: Yes (Other)
  Sender: FDA-Public Use
  Company Number: B0474027A

PATIENT
  Age: 63 Year
  Sex: Male

DRUGS (1)
  1. CLAMOXYL [Suspect]
     Dosage: 1G THREE TIMES PER DAY
     Route: 048
     Dates: start: 20070601, end: 20070601

REACTIONS (3)
  - HEPATITIS [None]
  - HEPATOSPLENOMEGALY [None]
  - LIVER DISORDER [None]
